FAERS Safety Report 8707274 (Version 2)
Quarter: 2012Q4

REPORT INFORMATION
  Report Type: 
  Country: DE (occurrence: DE)
  Receive Date: 20120803
  Receipt Date: 20120831
  Transmission Date: 20130627
  Serious: Yes (Other)
  Sender: FDA-Public Use
  Company Number: DE-B.I. PHARMACEUTICALS,INC./RIDGEFIELD-2012-DE-01758DE

PATIENT
  Age: 91 Year
  Sex: Male
  Weight: 80 kg

DRUGS (7)
  1. PRADAXA [Suspect]
     Indication: ATRIAL FIBRILLATION
     Dosage: 220 mg
     Route: 048
     Dates: start: 20120711, end: 20120714
  2. DIGIMERCK [Concomitant]
  3. RAMIPRIL [Concomitant]
  4. BISOPROLOL [Concomitant]
  5. ASS 100 [Concomitant]
  6. TENSOLISIN [Concomitant]
  7. FUROSEMIDE [Concomitant]

REACTIONS (2)
  - Urogenital haemorrhage [Not Recovered/Not Resolved]
  - Genitourinary tract neoplasm [Unknown]
